FAERS Safety Report 6080761-9 (Version None)
Quarter: 2009Q1

REPORT INFORMATION
  Report Type: 
  Country: None (occurrence: None)
  Receive Date: 20090217
  Receipt Date: 20090206
  Transmission Date: 20090719
  Serious: Yes (Other)
  Sender: FDA-Public Use
  Company Number: PHHY2009GB04655

PATIENT
  Sex: Female

DRUGS (3)
  1. CLOZARIL [Suspect]
     Indication: SCHIZOPHRENIA
     Dosage: 400 MG, QD
     Dates: start: 20080728
  2. CLOZARIL [Suspect]
     Dosage: 300 MG, QD
  3. CLOZARIL [Suspect]
     Dosage: 150 MG, QD

REACTIONS (4)
  - ANTIPSYCHOTIC DRUG LEVEL INCREASED [None]
  - DYSPHAGIA [None]
  - SCHIZOPHRENIA [None]
  - SENSATION OF HEAVINESS [None]
